FAERS Safety Report 5607503-2 (Version None)
Quarter: 2008Q1

REPORT INFORMATION
  Report Type: 
  Country: None (occurrence: None)
  Receive Date: 20080125
  Receipt Date: 20080110
  Transmission Date: 20080703
  Serious: Yes (Hospitalization)
  Sender: FDA-Public Use
  Company Number: 2007001665

PATIENT
  Age: 70 Year
  Sex: Male

DRUGS (17)
  1. ERLOTINIB (TABLET) [Suspect]
     Indication: COLORECTAL CANCER
     Dosage: 75 MG (QD), ORAL
     Route: 048
     Dates: start: 20070131
  2. BEVACIZUMAB (INJECTION FOR INFUSION) [Suspect]
     Dosage: 451 MG (Q2W), INTRAVENOUS
     Route: 042
     Dates: start: 20070130
  3. EVEROLIMUS (EVEROLIMUS) [Suspect]
     Dosage: 5 MG, (QD), ORAL
     Route: 048
     Dates: start: 20050927, end: 20051122
  4. NITROFURANTOIN [Concomitant]
  5. OXYCODONE HCL [Concomitant]
  6. OXYCONTIN [Concomitant]
  7. CENTRUM (CENTRUM) [Concomitant]
  8. ENABLEX [Concomitant]
  9. DITROPAN [Concomitant]
  10. IRON (IRON) [Concomitant]
  11. M.V.I. [Concomitant]
  12. PRILOSEC [Concomitant]
  13. NORVASC [Concomitant]
  14. GAS-X (DIMETICONE, ACTIVATED) [Concomitant]
  15. AUGMENTIN '125' [Concomitant]
  16. DEXAMETHASONE TAB [Concomitant]
  17. DIOVAN [Concomitant]

REACTIONS (10)
  - ANOREXIA [None]
  - BLOOD UREA INCREASED [None]
  - CONDITION AGGRAVATED [None]
  - DEHYDRATION [None]
  - FATIGUE [None]
  - FISTULA [None]
  - HAEMATOCRIT DECREASED [None]
  - HYPERGLYCAEMIA [None]
  - PLATELET COUNT DECREASED [None]
  - STRESS [None]
